FAERS Safety Report 11629237 (Version 2)
Quarter: 2015Q4

REPORT INFORMATION
  Report Type: Spontaneous
  Country: US (occurrence: US)
  Receive Date: 20151014
  Receipt Date: 20151019
  Transmission Date: 20160304
  Serious: Yes (Other)
  Sender: FDA-Public Use
  Company Number: US-PFIZER INC-2015341512

PATIENT
  Sex: Female

DRUGS (1)
  1. GABAPENTIN. [Suspect]
     Active Substance: GABAPENTIN
     Dosage: UNK

REACTIONS (7)
  - Gastrointestinal disorder [Unknown]
  - Pre-existing condition improved [Unknown]
  - Product physical issue [Unknown]
  - Product taste abnormal [Unknown]
  - Therapeutic response unexpected [Unknown]
  - Vomiting [Unknown]
  - Product odour abnormal [Unknown]
